FAERS Safety Report 24862531 (Version 1)
Quarter: 2025Q1

REPORT INFORMATION
  Report Type: Spontaneous
  Country: US (occurrence: US)
  Receive Date: 20250120
  Receipt Date: 20250120
  Transmission Date: 20250409
  Serious: No
  Sender: MERCK
  Company Number: US-009507513-2501USA004633

PATIENT
  Sex: Female
  Weight: 77.6 kg

DRUGS (19)
  1. WINREVAIR [Suspect]
     Active Substance: SOTATERCEPT-CSRK
     Indication: Product used for unknown indication
  2. REMODULIN [Suspect]
     Active Substance: TREPROSTINIL
     Indication: Pulmonary arterial hypertension
     Route: 042
     Dates: start: 20240223
  3. ADEMPAS [Concomitant]
     Active Substance: RIOCIGUAT
  4. ZOLOFT [Concomitant]
     Active Substance: SERTRALINE HYDROCHLORIDE
  5. CHILDREN^S ALLEGRA HIVES [Concomitant]
  6. PEPCID [Concomitant]
     Active Substance: FAMOTIDINE
  7. OPSUMIT [Concomitant]
     Active Substance: MACITENTAN
  8. PANTOPRAZOLE SODIUM [Concomitant]
     Active Substance: PANTOPRAZOLE SODIUM
  9. ELIQUIS [Concomitant]
     Active Substance: APIXABAN
  10. METOLAZONE [Concomitant]
     Active Substance: METOLAZONE
  11. POTASSIUM CHLORIDE [Concomitant]
     Active Substance: POTASSIUM CHLORIDE
  12. TOPIRAMATE [Concomitant]
     Active Substance: TOPIRAMATE
  13. BIOTIN [Concomitant]
     Active Substance: BIOTIN
  14. XANAX [Concomitant]
     Active Substance: ALPRAZOLAM
  15. VITAMIN B12 [Concomitant]
     Active Substance: CYANOCOBALAMIN
  16. SPIRONOLACTONE [Concomitant]
     Active Substance: SPIRONOLACTONE
  17. TORSEMIDE [Concomitant]
     Active Substance: TORSEMIDE
  18. ONDANSETRON HYDROCHLORIDE [Concomitant]
     Active Substance: ONDANSETRON HYDROCHLORIDE
  19. UBRELVY [Concomitant]
     Active Substance: UBROGEPANT

REACTIONS (1)
  - Platelet count decreased [Unknown]
